FAERS Safety Report 9900249 (Version 1)
Quarter: 2014Q1

REPORT INFORMATION
  Report Type: Spontaneous
  Country: GB (occurrence: GB)
  Receive Date: 20140215
  Receipt Date: 20140215
  Transmission Date: 20141002
  Serious: Yes (Other)
  Sender: FDA-Public Use
  Company Number: GB-ACCORD-021940

PATIENT
  Age: 32 Year
  Sex: Female

DRUGS (2)
  1. FLUOROURACIL [Suspect]
     Indication: GASTROINTESTINAL CARCINOMA
  2. CLOZAPINE [Suspect]
     Indication: SCHIZOPHRENIA
     Dosage: MONO THERAPY SINCE 2006

REACTIONS (3)
  - Leukopenia [Unknown]
  - Neutropenia [Recovered/Resolved]
  - Febrile neutropenia [Unknown]
